FAERS Safety Report 7639530-8 (Version None)
Quarter: 2011Q3

REPORT INFORMATION
  Report Type: 
  Country: None (occurrence: None)
  Receive Date: 20110722
  Receipt Date: 20110706
  Transmission Date: 20111222
  Serious: Yes (Hospitalization, Other)
  Sender: FDA-Public Use
  Company Number: 2011MA008432

PATIENT
  Age: 74 Year
  Sex: Female

DRUGS (2)
  1. LIDOCAINE [Suspect]
     Indication: BURSITIS
     Dosage: 10 MG/ML; IA
     Route: 014
  2. TRIAMCINOLONE ACETONIDE [Suspect]
     Indication: BURSITIS
     Dosage: 40 MG/ML; IA
     Route: 014

REACTIONS (2)
  - ANAPHYLACTIC SHOCK [None]
  - SKIN TEST POSITIVE [None]
